FAERS Safety Report 16115854 (Version 6)
Quarter: 2020Q1

REPORT INFORMATION
  Report Type: Report from Study
  Country: None (occurrence: US)
  Receive Date: 20190326
  Receipt Date: 20200102
  Transmission Date: 20200409
  Serious: Yes (Other)
  Sender: FDA-Public Use
  Company Number: US-ABBVIE-19K-163-2717468-00

PATIENT
  Sex: Male

DRUGS (1)
  1. HUMIRA [Suspect]
     Active Substance: ADALIMUMAB
     Indication: COLITIS ULCERATIVE
     Route: 058

REACTIONS (14)
  - Cochlea implant [Recovering/Resolving]
  - Ileostomy [Unknown]
  - Crohn^s disease [Recovered/Resolved]
  - Vertigo [Unknown]
  - Balance disorder [Not Recovered/Not Resolved]
  - Device deployment issue [Unknown]
  - Obstruction [Recovered/Resolved]
  - Weight decreased [Unknown]
  - Dysgeusia [Not Recovered/Not Resolved]
  - Ageusia [Not Recovered/Not Resolved]
  - Taste disorder [Unknown]
  - Dizziness [Unknown]
  - Hypoacusis [Not Recovered/Not Resolved]
  - Adhesion [Recovered/Resolved]
